FAERS Safety Report 9424425 (Version 1)
Quarter: 2013Q3

REPORT INFORMATION
  Report Type: Spontaneous
  Country: US (occurrence: None)
  Receive Date: 20130726
  Receipt Date: 20130726
  Transmission Date: 20140515
  Serious: Yes (Other)
  Sender: FDA-Public Use
  Company Number: None

PATIENT
  Age: 79 Year
  Sex: Male
  Weight: 93 kg

DRUGS (16)
  1. PANOBINOSTAT [Suspect]
     Indication: THYROID CANCER
     Dosage: MWF Q28 DAYS
     Route: 048
     Dates: start: 20120824, end: 20130701
  2. ALENDRONATE [Concomitant]
  3. CALCIUM+D [Concomitant]
  4. DIGOXIN [Concomitant]
  5. DORZOLAMIDE [Concomitant]
  6. TIMOLOL [Concomitant]
  7. NORCO [Concomitant]
  8. LATANOPROST [Concomitant]
  9. LEVOTHYROXINE [Concomitant]
  10. LOPERAMIDE [Concomitant]
  11. METOPROLOL [Concomitant]
  12. PAROXETINE [Concomitant]
  13. PROCHLORPERAZINE [Concomitant]
  14. SIMVASTATIN [Concomitant]
  15. TAMSULOSIN [Concomitant]
  16. WARFARIN [Concomitant]

REACTIONS (14)
  - Cerebral ischaemia [None]
  - Wheezing [None]
  - Cough [None]
  - Nausea [None]
  - Hallucination [None]
  - Nightmare [None]
  - Cerebrovascular accident [None]
  - Pulmonary mass [None]
  - Fall [None]
  - Subdural haematoma [None]
  - Cyanosis [None]
  - Intracranial pressure increased [None]
  - Brain herniation [None]
  - International normalised ratio increased [None]
